FAERS Safety Report 9681011 (Version 1)
Quarter: 2013Q1

REPORT INFORMATION
  Report Type: Spontaneous
  Country: US (occurrence: None)
  Receive Date: 20121108
  Receipt Date: 20121108
  Transmission Date: 20140127
  Serious: Yes (Hospitalization)
  Sender: FDA-Public Use
  Company Number: None

PATIENT
  Age: 75 Year
  Sex: Female
  Weight: 71.6 kg

DRUGS (1)
  1. FLUOROURACIL [Suspect]
     Indication: PANCREATIC CARCINOMA
     Route: 042
     Dates: start: 20130919, end: 20131029

REACTIONS (6)
  - Decreased appetite [None]
  - Asthenia [None]
  - Dehydration [None]
  - Unresponsive to stimuli [None]
  - Nausea [None]
  - Fatigue [None]
